FAERS Safety Report 13545248 (Version 1)
Quarter: 2017Q2

REPORT INFORMATION
  Report Type: Spontaneous
  Country: None (occurrence: US)
  Receive Date: 20170515
  Receipt Date: 20170515
  Transmission Date: 20170830
  Serious: Yes (Death)
  Sender: FDA-Public Use
  Company Number: None

PATIENT
  Age: 60 Year
  Sex: Male
  Weight: 66.3 kg

DRUGS (13)
  1. CALCIUM CARBONATE. [Concomitant]
     Active Substance: CALCIUM CARBONATE
  2. CARVEDILOL. [Concomitant]
     Active Substance: CARVEDILOL
  3. DILTIAZEM. [Concomitant]
     Active Substance: DILTIAZEM
  4. HYDRALAZINE [Concomitant]
     Active Substance: HYDRALAZINE HYDROCHLORIDE
  5. GUAIFENESIN. [Concomitant]
     Active Substance: GUAIFENESIN
  6. PHYTONADINE INJ 10MG/ML [Suspect]
     Active Substance: PHYTONADIONE
     Indication: PROCOAGULANT THERAPY
     Dosage: 1MG (0.1ML) ONCE INTRAVENOUS
     Route: 042
     Dates: start: 20170413, end: 20170413
  7. SERTRALINE [Concomitant]
     Active Substance: SERTRALINE HYDROCHLORIDE
  8. MICONAZOLE. [Concomitant]
     Active Substance: MICONAZOLE
  9. CLONIDINE. [Concomitant]
     Active Substance: CLONIDINE
  10. LOSARTAN. [Concomitant]
     Active Substance: LOSARTAN
  11. ISOSORBIDE MONONITRATE. [Concomitant]
     Active Substance: ISOSORBIDE MONONITRATE
  12. 0.9% SODIUM CHLORIDE 50ML [Suspect]
     Active Substance: SODIUM CHLORIDE
     Dosage: 50 ML 200 ML/HR
  13. INSULIN DETEMIR [Concomitant]
     Active Substance: INSULIN DETEMIR

REACTIONS (2)
  - Cardiac arrest [None]
  - Anaphylactic reaction [None]

NARRATIVE: CASE EVENT DATE: 20170413
